FAERS Safety Report 16423057 (Version 2)
Quarter: 2019Q4

REPORT INFORMATION
  Report Type: Spontaneous
  Country: US (occurrence: US)
  Receive Date: 20190612
  Receipt Date: 20191028
  Transmission Date: 20200122
  Serious: Yes (Hospitalization)
  Sender: FDA-Public Use
  Company Number: US-JNJFOC-20190614350

PATIENT
  Age: 59 Year
  Sex: Male

DRUGS (1)
  1. INVOKANA [Suspect]
     Active Substance: CANAGLIFLOZIN
     Indication: PRODUCT USED FOR UNKNOWN INDICATION
     Route: 048

REACTIONS (6)
  - Wound infection [Unknown]
  - Foot amputation [Unknown]
  - Osteomyelitis [Unknown]
  - Sepsis [Unknown]
  - Acute kidney injury [Recovered/Resolved]
  - Diabetic foot infection [Unknown]

NARRATIVE: CASE EVENT DATE: 201511
